FAERS Safety Report 12192588 (Version 1)
Quarter: 2016Q1

REPORT INFORMATION
  Report Type: Spontaneous
  Country: US (occurrence: US)
  Receive Date: 20160318
  Receipt Date: 20160318
  Transmission Date: 20160526
  Serious: No
  Sender: FDA-Public Use
  Company Number: US-TEVA-643190USA

PATIENT
  Sex: Female
  Weight: 62.65 kg

DRUGS (3)
  1. ADDERALL [Concomitant]
     Active Substance: AMPHETAMINE ASPARTATE\AMPHETAMINE SULFATE\DEXTROAMPHETAMINE SACCHARATE\DEXTROAMPHETAMINE SULFATE
  2. DEPLIN [Concomitant]
     Active Substance: LEVOMEFOLATE CALCIUM
     Indication: METHYLENETETRAHYDROFOLATE REDUCTASE GENE MUTATION
  3. NUVIGIL [Suspect]
     Active Substance: ARMODAFINIL
     Indication: HYPERSOMNIA-BULIMIA SYNDROME
     Route: 065
     Dates: start: 2015

REACTIONS (3)
  - Therapeutic response unexpected [Unknown]
  - Feeling abnormal [Unknown]
  - Product use issue [Unknown]
